FAERS Safety Report 5068924-2 (Version None)
Quarter: 2006Q3

REPORT INFORMATION
  Report Type: 
  Country: None (occurrence: None)
  Receive Date: 20060728
  Receipt Date: 20060711
  Transmission Date: 20061208
  Serious: Yes (Death, Other)
  Sender: FDA-Public Use
  Company Number: JP200606005227

PATIENT
  Age: 82 Year
  Sex: Female
  Weight: 34.1 kg

DRUGS (8)
  1. GEMZAR [Suspect]
     Indication: PANCREATIC CARCINOMA STAGE IV
     Dosage: 500 MG INTRAVENOUS
     Route: 042
     Dates: start: 20060517, end: 20060517
  2. GEMZAR [Suspect]
     Indication: PANCREATIC CARCINOMA STAGE IV
     Dosage: 500 MG INTRAVENOUS
     Route: 042
     Dates: start: 20060418
  3. TS1 /JPN/ (GIMERACIL, OTERACIL POTASSIUM, TEGAFUR) [Concomitant]
  4. DEPAS (ETIZOLAM) [Concomitant]
  5. ISOSORBIDE MONONITRATE [Concomitant]
  6. OMEPRAZOLE [Concomitant]
  7. ETODOLAC [Concomitant]
  8. MUCOSTA (REBAMIPIDE) [Concomitant]

REACTIONS (16)
  - ACRODERMATITIS [None]
  - BONE MARROW FAILURE [None]
  - CARBOHYDRATE ANTIGEN 19-9 INCREASED [None]
  - DRUG ERUPTION [None]
  - GASTRIC ULCER [None]
  - HAEMOGLOBIN DECREASED [None]
  - HYPERTENSION [None]
  - MALIGNANT ASCITES [None]
  - NECROSIS [None]
  - PAIN [None]
  - PERIPHERAL CIRCULATORY FAILURE [None]
  - PLATELET COUNT DECREASED [None]
  - PURPURA [None]
  - SKIN ULCER [None]
  - TOXIC SKIN ERUPTION [None]
  - TUMOUR MARKER INCREASED [None]
